FAERS Safety Report 9299296 (Version 4)
Quarter: 2013Q4

REPORT INFORMATION
  Report Type: Spontaneous
  Country: GB (occurrence: GB)
  Receive Date: 20130520
  Receipt Date: 20131106
  Transmission Date: 20140711
  Serious: Yes (Hospitalization)
  Sender: FDA-Public Use
  Company Number: PHHY2013GB048284

PATIENT
  Age: 58 Year
  Sex: Male
  Weight: 94 kg

DRUGS (5)
  1. LANSOPRAZOLE [Suspect]
     Indication: GASTROOESOPHAGEAL REFLUX DISEASE
     Dosage: 15 MG, QD
     Route: 048
  2. GALENIC /PARACETAMOL/CODEINE/ [Suspect]
     Indication: PSORIATIC ARTHROPATHY
     Dosage: UNK UKN, UNK, UNSPECIFIED DOSE DAILY
     Route: 048
  3. GOLIMUMAB [Suspect]
     Indication: PSORIATIC ARTHROPATHY
     Dosage: 50 MG, QMO
     Route: 058
     Dates: start: 201207, end: 20120824
  4. GOLIMUMAB [Suspect]
     Dosage: 50 MG
     Route: 058
     Dates: start: 20120824
  5. ARCOXIA [Suspect]
     Indication: PSORIATIC ARTHROPATHY
     Dosage: 90 MG, QD
     Route: 048

REACTIONS (1)
  - Allodynia [Recovering/Resolving]
